FAERS Safety Report 10004462 (Version 1)
Quarter: 2014Q1

REPORT INFORMATION
  Report Type: Spontaneous
  Country: US (occurrence: US)
  Receive Date: 20140312
  Receipt Date: 20140312
  Transmission Date: 20141002
  Serious: Yes (Hospitalization, Other)
  Sender: FDA-Public Use
  Company Number: US-PFIZER INC-2014068870

PATIENT
  Sex: Female

DRUGS (1)
  1. SKELAXIN [Suspect]
     Dosage: UNK

REACTIONS (7)
  - Fall [Unknown]
  - Multiple sclerosis relapse [Unknown]
  - Asthenia [Unknown]
  - Erythema [Unknown]
  - Insomnia [Unknown]
  - Muscle spasms [Unknown]
  - Flat affect [Unknown]
